FAERS Safety Report 4953908-2 (Version None)
Quarter: 2006Q1

REPORT INFORMATION
  Report Type: 
  Country: None (occurrence: None)
  Receive Date: 20060322
  Receipt Date: 20060310
  Transmission Date: 20060701
  Serious: Yes (Other)
  Sender: FDA-Public Use
  Company Number: CH200603002529

PATIENT
  Age: 23 Year
  Sex: Female

DRUGS (4)
  1. ZYPREXA [Suspect]
     Dosage: ORAL
     Route: 048
     Dates: start: 20051109, end: 20051127
  2. VALVERDE (VALERAN EXTRACT) [Concomitant]
  3. LEXOTANIL             /NET/ (BROMAZEPAM) [Concomitant]
  4. DAFALGAN    /FRA/  (PARACETAMOL) [Concomitant]

REACTIONS (6)
  - DRUG EXPOSURE DURING PREGNANCY [None]
  - INSOMNIA [None]
  - NAUSEA [None]
  - PAIN [None]
  - VAGINAL DISORDER [None]
  - VOMITING [None]
